FAERS Safety Report 18195235 (Version 2)
Quarter: 2021Q2

REPORT INFORMATION
  Report Type: Spontaneous
  Country: CA (occurrence: CA)
  Receive Date: 20200825
  Receipt Date: 20210513
  Transmission Date: 20210717
  Serious: Yes (Other)
  Sender: FDA-Public Use
  Company Number: CA-ASTRAZENECA-2020SF06065

PATIENT
  Age: 38 Year
  Sex: Male
  Weight: 90.7 kg

DRUGS (2)
  1. COMBANTRIN [Interacting]
     Active Substance: PYRANTEL PAMOATE
     Indication: ENTEROBIASIS
     Dosage: 9.0DF UNKNOWN
     Route: 048
  2. QUETIAPINE FUMARATE. [Suspect]
     Active Substance: QUETIAPINE FUMARATE
     Indication: PRODUCT USED FOR UNKNOWN INDICATION
     Route: 065

REACTIONS (7)
  - Overdose [Unknown]
  - Mucous stools [Recovering/Resolving]
  - Bowel movement irregularity [Recovered/Resolved]
  - Decreased appetite [Recovered/Resolved]
  - Depression [Recovered/Resolved]
  - Drug interaction [Recovering/Resolving]
  - Haematochezia [Recovered/Resolved]
